FAERS Safety Report 21491056 (Version 1)
Quarter: 2022Q4

REPORT INFORMATION
  Report Type: Spontaneous
  Country: US (occurrence: US)
  Receive Date: 20221021
  Receipt Date: 20221021
  Transmission Date: 20230112
  Serious: Yes (Other)
  Sender: FDA-Public Use
  Company Number: US-SA-SAC20221017001506

PATIENT
  Sex: Female

DRUGS (1)
  1. KEVZARA [Suspect]
     Active Substance: SARILUMAB
     Indication: Ankylosing spondylitis
     Dosage: 200MG, QOW
     Route: 058
     Dates: start: 201908

REACTIONS (2)
  - Ankylosing spondylitis [Unknown]
  - Product use in unapproved indication [Unknown]
